FAERS Safety Report 23488155 (Version 11)
Quarter: 2024Q4

REPORT INFORMATION
  Report Type: Spontaneous
  Country: US (occurrence: US)
  Receive Date: 20240206
  Receipt Date: 20241211
  Transmission Date: 20250115
  Serious: Yes (Hospitalization)
  Sender: SANOFI AVENTIS
  Company Number: US-SA-SAC20240129000185

PATIENT
  Age: 63 Year
  Sex: Male

DRUGS (7)
  1. ALPROLIX [Suspect]
     Active Substance: EFTRENONACOG ALFA
     Indication: Factor IX deficiency
     Dosage: 3500 U (3000 + 500 U), Q5D
     Route: 042
     Dates: start: 202312
  2. ALPROLIX [Suspect]
     Active Substance: EFTRENONACOG ALFA
     Indication: Factor IX deficiency
     Dosage: 3500 U (3000 + 500 U), Q5D
     Route: 042
     Dates: start: 202312
  3. ALPROLIX [Suspect]
     Active Substance: EFTRENONACOG ALFA
     Dosage: 7500 U, Q5D
     Route: 042
  4. ALPROLIX [Suspect]
     Active Substance: EFTRENONACOG ALFA
     Dosage: 7500 U, Q5D
     Route: 042
  5. VYNDAMAX [Concomitant]
     Active Substance: TAFAMIDIS
     Indication: Chronic kidney disease
     Dosage: UNK
  6. VYNDAMAX [Concomitant]
     Active Substance: TAFAMIDIS
     Indication: Cardiomyopathy
  7. BENEFIX [Concomitant]
     Active Substance: COAGULATION FACTOR IX RECOMBINANT HUMAN\ISOPROPYL ALCOHOL
     Indication: Haemorrhage
     Dosage: UNK, PRN

REACTIONS (11)
  - Spontaneous haemorrhage [Not Recovered/Not Resolved]
  - Cardiac disorder [Unknown]
  - Haemorrhage [Unknown]
  - Haemorrhage [Unknown]
  - Haemorrhage [Recovered/Resolved]
  - Abdominal pain upper [Unknown]
  - Weight decreased [Unknown]
  - Haemorrhage [Recovered/Resolved]
  - Contusion [Unknown]
  - Haemorrhage [Not Recovered/Not Resolved]
  - Anxiety [Unknown]

NARRATIVE: CASE EVENT DATE: 20231231
